FAERS Safety Report 9780629 (Version 2)
Quarter: 2013Q4

REPORT INFORMATION
  Report Type: Report from Study
  Country: US (occurrence: US)
  Receive Date: 20131224
  Receipt Date: 20131224
  Transmission Date: 20140711
  Serious: Yes (Death, Hospitalization)
  Sender: FDA-Public Use
  Company Number: US-JNJFOC-20131100345

PATIENT
  Sex: Female
  Weight: 71.22 kg

DRUGS (19)
  1. REMICADE [Suspect]
     Indication: RHEUMATOID ARTHRITIS
     Route: 042
     Dates: end: 20130605
  2. REMICADE [Suspect]
     Indication: RHEUMATOID ARTHRITIS
     Route: 042
     Dates: end: 20130405
  3. PLAQUENIL [Concomitant]
     Route: 065
  4. PREDNISONE [Concomitant]
     Route: 065
  5. LORTAB [Concomitant]
     Route: 065
  6. LASIX [Concomitant]
     Route: 065
  7. POTASSIUM [Concomitant]
     Route: 065
  8. ASA [Concomitant]
     Route: 065
  9. REQUIP [Concomitant]
     Route: 065
  10. CRESTOR [Concomitant]
     Route: 065
  11. JANUVIA [Concomitant]
     Route: 065
  12. FENOFIBRATE [Concomitant]
     Route: 065
  13. LEVOTHYROXINE [Concomitant]
     Route: 065
  14. NITRO [Concomitant]
     Route: 065
  15. MVI [Concomitant]
     Route: 065
  16. GABAPENTIN [Concomitant]
     Route: 065
  17. DITROPAN [Concomitant]
     Route: 065
  18. PRILOSEC [Concomitant]
     Route: 065
  19. ATENOLOL [Concomitant]
     Route: 065

REACTIONS (5)
  - Death [Fatal]
  - Renal failure [Unknown]
  - Pulmonary embolism [Unknown]
  - Cardiac failure congestive [Unknown]
  - Pulmonary hypertension [Unknown]
